FAERS Safety Report 4405278-6 (Version None)
Quarter: 2004Q3

REPORT INFORMATION
  Report Type: 
  Country: None (occurrence: None)
  Receive Date: 20040716
  Receipt Date: 20040705
  Transmission Date: 20050211
  Serious: Yes (Death, Other)
  Sender: FDA-Public Use
  Company Number: DEU-2004-0000907

PATIENT
  Age: 57 Year
  Sex: Male

DRUGS (7)
  1. THEOPHYLLINE [Suspect]
     Dosage: 30 GRAM, SINGLE, ORAL
     Route: 048
  2. PAPAVERETUM (OPIUM ALKALOIDS TOTAL) [Suspect]
     Dosage: 5 MG/HR, SINGLE,
  3. CHARCOAL, ACTIVATED (CHARCOAL, ACTIVATED) [Suspect]
     Dosage: 200 GRAM, SEE TEXT,
  4. SORBITOL (SORBITOL) [Suspect]
     Dosage: 150 ML, Q4H,
  5. ACETYLSALICYLIC ACID SRT [Suspect]
  6. ACETAMINOPHEN [Suspect]
  7. PANCURONIUM BROMIDE [Concomitant]

REACTIONS (15)
  - AGITATION [None]
  - ATRIAL FIBRILLATION [None]
  - HYPERGLYCAEMIA [None]
  - HYPERHIDROSIS [None]
  - HYPOKALAEMIA [None]
  - HYPOTENSION [None]
  - INTENTIONAL OVERDOSE [None]
  - INTESTINAL OBSTRUCTION [None]
  - MULTIPLE DRUG OVERDOSE [None]
  - OLIGURIA [None]
  - PNEUMONIA [None]
  - SEPSIS [None]
  - SINUS TACHYCARDIA [None]
  - TREMOR [None]
  - VOMITING [None]
